FAERS Safety Report 14720645 (Version 1)
Quarter: 2018Q2

REPORT INFORMATION
  Report Type: Spontaneous
  Country: CN (occurrence: CN)
  Receive Date: 20180405
  Receipt Date: 20180405
  Transmission Date: 20180711
  Serious: Yes (Other)
  Sender: FDA-Public Use
  Company Number: CN-ASTRAZENECA-2018SE43047

PATIENT
  Sex: Male
  Weight: 60 kg

DRUGS (5)
  1. EDARAVONE [Suspect]
     Active Substance: EDARAVONE
     Indication: STENT PLACEMENT
     Route: 041
     Dates: start: 20180124, end: 20180220
  2. ROSUVASTATIN CALCIUM. [Suspect]
     Active Substance: ROSUVASTATIN CALCIUM
     Indication: STENT PLACEMENT
     Route: 048
     Dates: start: 20180124, end: 20180220
  3. ALPROSTADIL. [Suspect]
     Active Substance: ALPROSTADIL
     Indication: CEREBRAL INFARCTION
     Route: 065
     Dates: start: 20180124, end: 20180221
  4. LEVOFLOXACIN. [Suspect]
     Active Substance: LEVOFLOXACIN
     Indication: STENT PLACEMENT
     Route: 048
     Dates: start: 20180207, end: 20180220
  5. CIMETIDINE [Suspect]
     Active Substance: CIMETIDINE
     Indication: CEREBRAL INFARCTION
     Route: 041
     Dates: start: 20180126, end: 20180221

REACTIONS (4)
  - White blood cell count decreased [Unknown]
  - Blood glucose increased [Unknown]
  - Neutropenia [Unknown]
  - Hepatic function abnormal [Unknown]
